FAERS Safety Report 6262794-2 (Version None)
Quarter: 2009Q3

REPORT INFORMATION
  Report Type: 
  Country: None (occurrence: None)
  Receive Date: 20090708
  Receipt Date: 20090629
  Transmission Date: 20100115
  Serious: Yes (Death)
  Sender: FDA-Public Use
  Company Number: 2009AL001467

PATIENT
  Age: 75 Year
  Sex: Female
  Weight: 73.4827 kg

DRUGS (5)
  1. DIGOXIN [Suspect]
     Dosage: 0.25MG, PO
     Route: 048
     Dates: start: 20080104, end: 20080422
  2. DILTIAZEM [Concomitant]
  3. COLCHICINE [Concomitant]
  4. XANAX [Concomitant]
  5. GLIPIZIDE [Concomitant]

REACTIONS (2)
  - CARDIAC FAILURE CONGESTIVE [None]
  - GENERAL PHYSICAL HEALTH DETERIORATION [None]
